FAERS Safety Report 4293728-8 (Version None)
Quarter: 2004Q1

REPORT INFORMATION
  Report Type: 
  Country: None (occurrence: None)
  Receive Date: 20040210
  Receipt Date: 20040210
  Transmission Date: 20041129
  Serious: No
  Sender: FDA-Public Use
  Company Number: None

PATIENT
  Age: 55 Year
  Sex: Male
  Weight: 77.9 kg

DRUGS (4)
  1. HYDROCHLOROTHIAZIDE [Suspect]
     Indication: HYPERTENSION
     Dosage: 25 MG QD (PREVIOUSLY ON 12.5 MG)
     Dates: start: 20031107, end: 20031121
  2. THIAMINE [Concomitant]
  3. SERTRALINE HCL [Concomitant]
  4. DOXYCYCLINE [Concomitant]

REACTIONS (1)
  - HYPOKALAEMIA [None]
